FAERS Safety Report 9994410 (Version 3)
Quarter: 2014Q2

REPORT INFORMATION
  Report Type: Report from Study
  Country: US (occurrence: US)
  Receive Date: 20140311
  Receipt Date: 20140506
  Transmission Date: 20141212
  Serious: Yes (Hospitalization)
  Sender: FDA-Public Use
  Company Number: US-BIOGENIDEC-2014BI022845

PATIENT
  Age: 58 Year
  Sex: Female

DRUGS (21)
  1. TYSABRI [Suspect]
     Indication: PRODUCT USED FOR UNKNOWN INDICATION
     Route: 042
     Dates: start: 20100323
  2. AMPYRA [Concomitant]
     Route: 048
  3. TRAZODONE [Concomitant]
  4. SUMATRIPTAN [Concomitant]
  5. VITAMIN B 12 [Concomitant]
  6. VITAMIN D [Concomitant]
  7. ESTRADIOL [Concomitant]
  8. FLEXERIL [Concomitant]
  9. PRISTIQ [Concomitant]
  10. LEVOTHYROXINE [Concomitant]
  11. LIDOCAINE PATCH [Concomitant]
  12. LORAZEPAM [Concomitant]
  13. MECLIZINE [Concomitant]
  14. NAPROXEN [Concomitant]
  15. REGLAN [Concomitant]
  16. PRIMIDONE [Concomitant]
  17. FLOMAX [Concomitant]
  18. ZOFRAN [Concomitant]
  19. OXYCODONE [Concomitant]
  20. ACARBOSE [Concomitant]
  21. CARAFATE [Concomitant]

REACTIONS (4)
  - Dysphagia [Not Recovered/Not Resolved]
  - Feeding tube complication [Not Recovered/Not Resolved]
  - Device related infection [Recovered/Resolved]
  - Blood pressure decreased [Not Recovered/Not Resolved]
